FAERS Safety Report 8174186-X (Version None)
Quarter: 2012Q1

REPORT INFORMATION
  Report Type: 
  Country: None (occurrence: None)
  Receive Date: 20120224
  Receipt Date: 20120207
  Transmission Date: 20120608
  Serious: Yes (Death)
  Sender: FDA-Public Use
  Company Number: FK201200394

PATIENT
  Age: 8 Year
  Sex: Male

DRUGS (4)
  1. METHOTREXATE (MANUFACTURE UNKNOWN) (METHOTREXATE) (METHOTREXATE) [Suspect]
     Indication: NON-HODGKIN'S LYMPHOMA
     Dosage: INTRATHECAL
     Route: 037
  2. DOXORUBICIN HCL [Suspect]
     Indication: NON-HODGKIN'S LYMPHOMA
  3. VINCRISTINE [Suspect]
     Indication: NON-HODGKIN'S LYMPHOMA
  4. CYCLOPHOSPHAMIDE (MANUFACTURE UNKNOWN) (CYCLOPHOSPHAMIDE) (CYCLOPHOSPH [Suspect]
     Indication: NON-HODGKIN'S LYMPHOMA

REACTIONS (2)
  - FEBRILE NEUTROPENIA [None]
  - ENTEROBACTER SEPSIS [None]
